FAERS Safety Report 4461807-8 (Version None)
Quarter: 2004Q3

REPORT INFORMATION
  Report Type: 
  Country: None (occurrence: None)
  Receive Date: 20040929
  Receipt Date: 20031022
  Transmission Date: 20050211
  Serious: No
  Sender: FDA-Public Use
  Company Number: US-GLAXOSMITHKLINE-A0431133A

PATIENT
  Age: 76 Year
  Sex: Male

DRUGS (7)
  1. SEREVENT [Suspect]
     Indication: ASTHMA
     Dosage: 1PUFF PER DAY
     Route: 055
     Dates: start: 20030601
  2. AEROBID [Concomitant]
  3. HEART MEDICATION [Concomitant]
  4. EMPHYSEMA MEDICATION [Concomitant]
     Indication: EMPHYSEMA
  5. UNSPECIFIED INHALER [Concomitant]
     Indication: DRUG USE FOR UNKNOWN INDICATION
  6. PAIN MEDICATION [Concomitant]
     Indication: PAIN
     Route: 048
  7. NASAL MEDICATION [Concomitant]
     Route: 048

REACTIONS (2)
  - CANDIDIASIS [None]
  - ORAL PAIN [None]
